FAERS Safety Report 9165089 (Version 1)
Quarter: 2013Q1

REPORT INFORMATION
  Report Type: Spontaneous
  Country: US (occurrence: None)
  Receive Date: 20130228
  Receipt Date: 20130228
  Transmission Date: 20140127
  Serious: Yes (Other)
  Sender: FDA-Public Use
  Company Number: GER/UKI/13/0028198

PATIENT
  Sex: Female

DRUGS (1)
  1. FLUOXETINE (FLUOXETINE) [Suspect]
     Indication: PRODUCT USED FOR UNKNOWN INDICATION

REACTIONS (2)
  - Lymphadenopathy [None]
  - Tremor [None]
